FAERS Safety Report 24103166 (Version 1)
Quarter: 2024Q3

REPORT INFORMATION
  Report Type: Report from Study
  Country: US (occurrence: None)
  Receive Date: 20240717
  Receipt Date: 20240717
  Transmission Date: 20241017
  Serious: Yes (Hospitalization)
  Sender: ASTRAZENECA
  Company Number: 2019SF08397

PATIENT
  Age: 17027 Day
  Sex: Female

DRUGS (1)
  1. TAGRISSO [Suspect]
     Active Substance: OSIMERTINIB
     Indication: Lung neoplasm malignant
     Route: 048
     Dates: start: 20190718

REACTIONS (13)
  - Haemorrhagic stroke [Unknown]
  - Limb discomfort [Unknown]
  - Muscular weakness [Unknown]
  - Hypoaesthesia [Unknown]
  - Head injury [Unknown]
  - Fall [Recovered/Resolved]
  - Urinary incontinence [Unknown]
  - Anal incontinence [Unknown]
  - Blood glucose increased [Unknown]
  - Malaise [Unknown]
  - Confusional state [Unknown]
  - Headache [Unknown]
  - Vomiting [Unknown]

NARRATIVE: CASE EVENT DATE: 20190717
